FAERS Safety Report 5343936-X (Version None)
Quarter: 2007Q2

REPORT INFORMATION
  Report Type: 
  Country: None (occurrence: None)
  Receive Date: 20070531
  Receipt Date: 20070531
  Transmission Date: 20071010
  Serious: Yes (Other)
  Sender: FDA-Public Use
  Company Number: None

PATIENT
  Sex: Female
  Weight: 56.6996 kg

DRUGS (1)
  1. WALGREEN'S WHITENING UNKNOWN. DISTRIBUTED BY [Suspect]
     Indication: DENTAL DISORDER PROPHYLAXIS
     Dosage: 1/4 INCH RIBBON BRUSHING TEETH 2 TIMES A DAY DENTAL
     Route: 004
     Dates: start: 20070410, end: 20070412

REACTIONS (4)
  - DIARRHOEA [None]
  - FAECES DISCOLOURED [None]
  - MOUTH ULCERATION [None]
  - VOMITING [None]
